FAERS Safety Report 5712368-4 (Version None)
Quarter: 2008Q2

REPORT INFORMATION
  Report Type: 
  Country: None (occurrence: None)
  Receive Date: 20080418
  Receipt Date: 20080402
  Transmission Date: 20081010
  Serious: Yes (Death)
  Sender: FDA-Public Use
  Company Number: 08-192

PATIENT
  Sex: Male
  Weight: 69.8539 kg

DRUGS (8)
  1. FAZACLO ODT [Suspect]
     Indication: BIPOLAR DISORDER
     Dosage: 300 MG PO DAILY
     Route: 048
     Dates: start: 20061115, end: 20080221
  2. PLAVIX [Concomitant]
  3. LEXAPRO [Concomitant]
  4. RISPERDAL [Concomitant]
  5. BENZTROPINE MESYLATE [Concomitant]
  6. METOPROLOL TARTRATE [Concomitant]
  7. IMDUR [Concomitant]
  8. SENNA [Concomitant]

REACTIONS (1)
  - DEATH [None]
